FAERS Safety Report 6073243-1 (Version None)
Quarter: 2009Q1

REPORT INFORMATION
  Report Type: 
  Country: None (occurrence: None)
  Receive Date: 20090211
  Receipt Date: 20081212
  Transmission Date: 20090719
  Serious: No
  Sender: FDA-Public Use
  Company Number: A0760198A

PATIENT
  Sex: Female

DRUGS (4)
  1. ALTABAX [Suspect]
     Indication: WOUND INFECTION
     Route: 061
     Dates: start: 20081211
  2. SINGULAIR [Concomitant]
  3. MULTI-VITAMINS [Concomitant]
  4. CINNAMON [Concomitant]

REACTIONS (2)
  - DIZZINESS [None]
  - GAIT DISTURBANCE [None]
